FAERS Safety Report 8762766 (Version 1)
Quarter: 2012Q4

REPORT INFORMATION
  Report Type: 
  Country: DE (occurrence: DE)
  Receive Date: 20120828
  Receipt Date: 20120828
  Transmission Date: 20130627
  Serious: Yes (Life-Threatening)
  Sender: FDA-Public Use
  Company Number: DE-ELI_LILLY_AND_COMPANY-DE201208007453

PATIENT
  Age: 55 Year
  Sex: Female

DRUGS (4)
  1. GEMCITABINE HYDROCHLORIDE [Suspect]
     Indication: HODGKIN^S DISEASE
     Dosage: 800 mg/m2, UNK
     Dates: start: 20120817, end: 20120820
  2. IFOSFAMIDE [Concomitant]
     Dosage: 2000 mg, bid
     Dates: start: 20120817, end: 20120820
  3. VINBLASTINE SULFATE [Concomitant]
     Dosage: 20 mg/m2, UNK
     Dates: start: 20120817, end: 20120817
  4. PREDNISOLONE [Concomitant]
     Dosage: 100 mg, UNK
     Dates: start: 20120817, end: 20120820

REACTIONS (5)
  - Sepsis [Not Recovered/Not Resolved]
  - Overdose [Not Recovered/Not Resolved]
  - Mucosal inflammation [Not Recovered/Not Resolved]
  - Leukopenia [Not Recovered/Not Resolved]
  - Off label use [Unknown]
